FAERS Safety Report 23718993 (Version 1)
Quarter: 2024Q2

REPORT INFORMATION
  Report Type: Spontaneous
  Country: US (occurrence: None)
  Receive Date: 20240407
  Receipt Date: 20240407
  Transmission Date: 20240716
  Serious: No
  Sender: FDA-Public Use
  Company Number: None

PATIENT
  Age: 57 Year
  Sex: Female
  Weight: 67.5 kg

DRUGS (6)
  1. PROLIA [Suspect]
     Active Substance: DENOSUMAB
     Indication: Osteoporosis
     Dosage: FREQUENCY : ONCE;?OTHER ROUTE : INJECTION INTO FATTY TISSUE;?
     Route: 050
     Dates: start: 20230823, end: 20230823
  2. MELOXICAM [Concomitant]
     Active Substance: MELOXICAM
  3. RIZATRIPTAN [Concomitant]
     Active Substance: RIZATRIPTAN
  4. CALCIUM [Concomitant]
     Active Substance: CALCIUM
  5. VITAMIN D3 [Concomitant]
     Active Substance: CHOLECALCIFEROL
  6. CENTRUM WOMEN^S VITAMIN [Concomitant]

REACTIONS (10)
  - Tendonitis [None]
  - Arthralgia [None]
  - Loss of personal independence in daily activities [None]
  - Arthralgia [None]
  - Pain in jaw [None]
  - Pain in extremity [None]
  - Fatigue [None]
  - Insomnia [None]
  - Fatigue [None]
  - Euphoric mood [None]

NARRATIVE: CASE EVENT DATE: 20231015
